FAERS Safety Report 17075961 (Version 1)
Quarter: 2019Q4

REPORT INFORMATION
  Report Type: Spontaneous
  Country: US (occurrence: US)
  Receive Date: 20191126
  Receipt Date: 20191126
  Transmission Date: 20200122
  Serious: Yes (Hospitalization, Other)
  Sender: FDA-Public Use
  Company Number: US-GILEAD-2019-0439266

PATIENT
  Age: 54 Year
  Sex: Female

DRUGS (1)
  1. LETAIRIS [Suspect]
     Active Substance: AMBRISENTAN
     Indication: PRODUCT USED FOR UNKNOWN INDICATION
     Dosage: UNK
     Route: 065

REACTIONS (7)
  - Vomiting [Unknown]
  - Urinary tract infection [Unknown]
  - Headache [Unknown]
  - Abdominal pain upper [Unknown]
  - Injection site pruritus [Not Recovered/Not Resolved]
  - Application site reaction [Recovered/Resolved]
  - Hepatic encephalopathy [Recovering/Resolving]
